FAERS Safety Report 18244568 (Version 1)
Quarter: 2020Q3

REPORT INFORMATION
  Report Type: Spontaneous
  Country: CN (occurrence: CN)
  Receive Date: 20200909
  Receipt Date: 20200909
  Transmission Date: 20201103
  Serious: Yes (Hospitalization)
  Sender: FDA-Public Use
  Company Number: CN-PFIZER INC-2020344780

PATIENT
  Age: 47 Year
  Sex: Female
  Weight: 40.1 kg

DRUGS (6)
  1. ANZATAX [PACLITAXEL] [Suspect]
     Active Substance: PACLITAXEL
     Dosage: 240 MG, 1X/DAY
     Route: 041
     Dates: start: 20200716, end: 20200716
  2. CARBOPLATIN. [Suspect]
     Active Substance: CARBOPLATIN
     Dosage: UNK
     Route: 041
     Dates: start: 20200520, end: 20200520
  3. ANZATAX [PACLITAXEL] [Suspect]
     Active Substance: PACLITAXEL
     Dosage: UNK
     Route: 041
     Dates: start: 20200520, end: 20200520
  4. CARBOPLATIN. [Suspect]
     Active Substance: CARBOPLATIN
     Dosage: 495 MG, 1X/DAY
     Route: 041
     Dates: start: 20200716, end: 20200716
  5. ANZATAX [PACLITAXEL] [Suspect]
     Active Substance: PACLITAXEL
     Indication: OVARIAN CANCER
     Dosage: UNK
     Route: 041
     Dates: start: 20200430, end: 20200430
  6. CARBOPLATIN. [Suspect]
     Active Substance: CARBOPLATIN
     Indication: OVARIAN CANCER
     Dosage: UNK
     Route: 041
     Dates: start: 20200430, end: 20200430

REACTIONS (1)
  - Hepatic function abnormal [Recovering/Resolving]

NARRATIVE: CASE EVENT DATE: 20200807
